FAERS Safety Report 11387865 (Version 1)
Quarter: 2015Q3

REPORT INFORMATION
  Report Type: Spontaneous
  Country: JP (occurrence: JP)
  Receive Date: 20150817
  Receipt Date: 20150817
  Transmission Date: 20151125
  Serious: Yes (Disabling, Other)
  Sender: FDA-Public Use
  Company Number: JP-009507513-1508JPN006230

PATIENT
  Age: 76 Year
  Sex: Male

DRUGS (2)
  1. AVASTIN [Concomitant]
     Active Substance: BEVACIZUMAB
     Dosage: DAILY DOSE UNKNOWN
     Route: 065
     Dates: end: 201507
  2. TEMODAL [Suspect]
     Active Substance: TEMOZOLOMIDE
     Indication: MALIGNANT GLIOMA
     Dosage: DAILY DOSE UNKNOWN
     Route: 048
     Dates: start: 20150809, end: 20150813

REACTIONS (1)
  - Cerebral infarction [Unknown]

NARRATIVE: CASE EVENT DATE: 20150813
